FAERS Safety Report 5406972-0 (Version None)
Quarter: 2007Q3

REPORT INFORMATION
  Report Type: 
  Country: None (occurrence: None)
  Receive Date: 20070807
  Receipt Date: 20070730
  Transmission Date: 20080115
  Serious: Yes (Disabling)
  Sender: FDA-Public Use
  Company Number: CA-BAYER-200714418GDS

PATIENT
  Age: 33 Year
  Sex: Female

DRUGS (1)
  1. CIPRO XR [Suspect]
     Indication: URINARY TRACT INFECTION
     Route: 048

REACTIONS (5)
  - ARTHRALGIA [None]
  - ARTHRITIS [None]
  - MYALGIA [None]
  - MYOSITIS [None]
  - TENDONITIS [None]
